FAERS Safety Report 10540260 (Version 1)
Quarter: 2014Q4

REPORT INFORMATION
  Report Type: Spontaneous
  Country: None (occurrence: None)
  Receive Date: 20141022
  Receipt Date: 20141022
  Transmission Date: 20150529
  Serious: Yes (Death)
  Sender: FDA-Public Use
  Company Number: 2014100036

PATIENT
  Age: 69 Year
  Sex: Female

DRUGS (9)
  1. ELTROXIN (LEVOTHYROXINE SODIUM) [Concomitant]
  2. BILOCOR (BISOPROLOL FUMARATE) [Concomitant]
  3. SLOW-MAG (MAGNEISUM CHLORIDE ANHYDROUS) [Concomitant]
  4. UNAT [Suspect]
     Active Substance: TORSEMIDE
     Indication: DIURETIC THERAPY
     Route: 048
     Dates: start: 2011
  5. SPIRACTIN (SPIRONOLACTONE) [Concomitant]
  6. DISPRIN (ACETYLSALICYLIC ACID) [Concomitant]
  7. COTRIDERM (COTRIDERM) [Concomitant]
  8. PYNSTOP (CODEINE PHOSPHATE, CAFFEINE, PARACTAMOL, DOXYLAMINE SUCCINATE) [Concomitant]
  9. CITRAZ (CITRAZ) [Concomitant]

REACTIONS (1)
  - Cardiac failure [None]

NARRATIVE: CASE EVENT DATE: 20140901
